FAERS Safety Report 17400809 (Version 1)
Quarter: 2020Q1

REPORT INFORMATION
  Report Type: Spontaneous
  Country: US (occurrence: US)
  Receive Date: 20200211
  Receipt Date: 20200211
  Transmission Date: 20200409
  Serious: Yes (Hospitalization)
  Sender: FDA-Public Use
  Company Number: US-IPSEN BIOPHARMACEUTICALS, INC.-2020-02612

PATIENT
  Sex: Female
  Weight: 46.3 kg

DRUGS (1)
  1. DYSPORT [Suspect]
     Active Substance: ABOBOTULINUMTOXINA
     Indication: MUSCLE SPASTICITY
     Dosage: 900 UNITS DIVIDED INTO 12 MUSCLES
     Route: 030
     Dates: start: 20191011, end: 20191011

REACTIONS (2)
  - Dehydration [Unknown]
  - Dystonia [Unknown]
